FAERS Safety Report 23152855 (Version 1)
Quarter: 2023Q4

REPORT INFORMATION
  Report Type: Report from Study
  Country: US (occurrence: US)
  Receive Date: 20231107
  Receipt Date: 20231107
  Transmission Date: 20240109
  Serious: No
  Sender: FDA-Public Use
  Company Number: US-ACADIA PHARMACEUTICALS INC.-ACA-2023-PIM-004722

PATIENT
  Sex: Male

DRUGS (13)
  1. NUPLAZID [Suspect]
     Active Substance: PIMAVANSERIN TARTRATE
     Indication: Parkinson^s disease
     Dosage: 34 MILLIGRAM, QD
     Route: 048
     Dates: start: 202309
  2. PROTONIX [Concomitant]
     Active Substance: PANTOPRAZOLE SODIUM
  3. FAMOTIDINE [Concomitant]
     Active Substance: FAMOTIDINE
  4. TAMSULOSIN [Concomitant]
     Active Substance: TAMSULOSIN
  5. LEVOTHYROXINE [Concomitant]
     Active Substance: LEVOTHYROXINE
  6. NAMENDA [Concomitant]
     Active Substance: MEMANTINE HYDROCHLORIDE
  7. AMLODIPINE [Concomitant]
     Active Substance: AMLODIPINE BESYLATE
  8. HYOSCYAMINE [Concomitant]
     Active Substance: HYOSCYAMINE
  9. MECLIZINE [Concomitant]
     Active Substance: MECLIZINE HYDROCHLORIDE
  10. ONDANSETRON [Concomitant]
     Active Substance: ONDANSETRON
  11. BRIMONIDINE [Concomitant]
     Active Substance: BRIMONIDINE TARTRATE
  12. SINEMET [Concomitant]
     Active Substance: CARBIDOPA\LEVODOPA
  13. VITAMIN D3 [Concomitant]
     Active Substance: CHOLECALCIFEROL

REACTIONS (1)
  - Drug ineffective [Unknown]
